FAERS Safety Report 6842246-9 (Version None)
Quarter: 2010Q3

REPORT INFORMATION
  Report Type: 
  Country: None (occurrence: None)
  Receive Date: 20100714
  Receipt Date: 20070725
  Transmission Date: 20110219
  Serious: No
  Sender: FDA-Public Use
  Company Number: US-PFIZER INC-2007062543

PATIENT
  Sex: Female
  Weight: 54.4 kg

DRUGS (4)
  1. CHANTIX [Suspect]
     Indication: SMOKING CESSATION THERAPY
     Dates: start: 20070722, end: 20070724
  2. DILANTIN [Concomitant]
  3. AMITRIPTYLINE HYDROCHLORIDE [Concomitant]
  4. CLONAZEPAM [Concomitant]

REACTIONS (1)
  - INSOMNIA [None]
